FAERS Safety Report 5765204-4 (Version None)
Quarter: 2008Q2

REPORT INFORMATION
  Report Type: 
  Country: None (occurrence: None)
  Receive Date: 20080610
  Receipt Date: 20080610
  Transmission Date: 20081010
  Serious: Yes (Other)
  Sender: FDA-Public Use
  Company Number: None

PATIENT
  Age: 11 Year
  Sex: Male
  Weight: 40.8237 kg

DRUGS (2)
  1. SINGULAIR [Suspect]
     Indication: ASTHMA
     Dosage: 5MG PO QD X YEERS
  2. SINGULAIR [Suspect]
     Indication: RHINITIS ALLERGIC
     Dosage: 5MG PO QD X YEERS

REACTIONS (1)
  - MOOD ALTERED [None]
